FAERS Safety Report 5537691-8 (Version None)
Quarter: 2007Q4

REPORT INFORMATION
  Report Type: 
  Country: None (occurrence: None)
  Receive Date: 20071207
  Receipt Date: 20071205
  Transmission Date: 20080405
  Serious: Yes (Other)
  Sender: FDA-Public Use
  Company Number: GB-WYE-G00733707

PATIENT
  Age: 49 Year
  Sex: Male

DRUGS (1)
  1. TAZOCIN [Suspect]
     Indication: PERFORATED ULCER
     Dosage: 4.5 GM UNKNOWN FREQUENCY
     Route: 042
     Dates: start: 20071119, end: 20071119

REACTIONS (4)
  - DRY MOUTH [None]
  - EYE PAIN [None]
  - LACRIMATION INCREASED [None]
  - RASH MACULAR [None]
